FAERS Safety Report 16706198 (Version 5)
Quarter: 2019Q4

REPORT INFORMATION
  Report Type: Spontaneous
  Country: US (occurrence: US)
  Receive Date: 20190815
  Receipt Date: 20191101
  Transmission Date: 20200122
  Serious: Yes (Hospitalization, Other)
  Sender: FDA-Public Use
  Company Number: US-CATALYST PHARMACEUTICALS, INC-2019CAT00303

PATIENT
  Age: 76 Year
  Sex: Female
  Weight: 48.98 kg

DRUGS (15)
  1. BIOTENE NOS [Suspect]
     Active Substance: CETYLPYRIDINIUM CHLORIDE OR SODIUM FLUORIDE OR SODIUM MONOFLUOROPHOSPHATE OR GLUCOSE OXIDASE\LACTOFERRIN\LACTOPEROXIDASE BOVINE\LYSOZYME
  2. FERROUS SULFATE. [Concomitant]
     Active Substance: FERROUS SULFATE
     Dosage: UNK, 2X/DAY
  3. TYLENOL [Concomitant]
     Active Substance: ACETAMINOPHEN
     Dosage: 650 MG, AS NEEDED
  4. FIRDAPSE [Suspect]
     Active Substance: AMIFAMPRIDINE
     Dosage: 20 MG, 3X/DAY
     Dates: start: 2019, end: 2019
  5. FIRDAPSE [Suspect]
     Active Substance: AMIFAMPRIDINE
     Dosage: 20 MG, 4X/DAY
     Dates: start: 2019, end: 2019
  6. PANTOPRAZOLE [Concomitant]
     Active Substance: PANTOPRAZOLE
     Dosage: 40 MG, 1X/DAY
  7. MIDODRINE [Concomitant]
     Active Substance: MIDODRINE
     Dosage: 10 MG, 3X/DAY
     Route: 048
  8. MIDODRINE [Concomitant]
     Active Substance: MIDODRINE
     Dosage: 10 MG, 2X/DAY
  9. PILOCARPINE. [Concomitant]
     Active Substance: PILOCARPINE
     Dosage: 5 MG, 3X/DAY
     Route: 048
  10. FERROUS SULFATE. [Concomitant]
     Active Substance: FERROUS SULFATE
     Dosage: 325 MG, 1X/DAY
  11. DULCOLAX NOS [Concomitant]
     Active Substance: BISACODYL OR DOCUSATE SODIUM
     Dosage: 10 MG
     Route: 054
  12. MIRTAZAPINE. [Concomitant]
     Active Substance: MIRTAZAPINE
     Dosage: 15 MG, 1X/DAY AT BEDTIME
     Route: 048
     Dates: end: 201910
  13. FIRDAPSE [Suspect]
     Active Substance: AMIFAMPRIDINE
     Dosage: 10 MG, 8X/DAY
     Dates: start: 2019, end: 2019
  14. BREO ELLIPTA [Concomitant]
     Active Substance: FLUTICASONE FUROATE\VILANTEROL TRIFENATATE
     Dosage: 1 DOSAGE UNITS, 1X/DAY
  15. FIRDAPSE [Suspect]
     Active Substance: AMIFAMPRIDINE
     Indication: MYASTHENIC SYNDROME
     Dosage: 10 MG, 8X/DAY (10 MG EVERY 1 HOUR FOR 8 HOURS)
     Route: 048
     Dates: start: 20190208, end: 2019

REACTIONS (30)
  - Swollen tongue [Unknown]
  - Musculoskeletal pain [Recovered/Resolved]
  - Appendicitis [Unknown]
  - Fall [Recovered/Resolved]
  - Urinary tract infection [Recovered/Resolved]
  - Night sweats [Recovering/Resolving]
  - Hypomagnesaemia [Unknown]
  - Renal cyst [Unknown]
  - Back pain [Unknown]
  - Constipation [Recovering/Resolving]
  - Hypophosphataemia [Recovered/Resolved]
  - Osteopenia [Not Recovered/Not Resolved]
  - Scoliosis [Not Recovered/Not Resolved]
  - Hypercalcaemia [Recovered/Resolved]
  - Dyspnoea exertional [Unknown]
  - Dehydration [Recovering/Resolving]
  - Oropharyngeal pain [Recovering/Resolving]
  - Speech disorder [Recovering/Resolving]
  - Fatigue [Recovering/Resolving]
  - Pyuria [Unknown]
  - Pneumonia aspiration [Recovered/Resolved]
  - Sepsis [Recovered/Resolved]
  - Asthenia [Recovering/Resolving]
  - Dysarthria [Recovering/Resolving]
  - Nausea [Unknown]
  - Diarrhoea [Unknown]
  - Nephrolithiasis [Unknown]
  - Failure to thrive [Recovering/Resolving]
  - Acute kidney injury [Recovered/Resolved]
  - Vomiting [Unknown]

NARRATIVE: CASE EVENT DATE: 2019
